FAERS Safety Report 25413829 (Version 1)
Quarter: 2025Q2

REPORT INFORMATION
  Report Type: Spontaneous
  Country: US (occurrence: US)
  Receive Date: 20250609
  Receipt Date: 20250609
  Transmission Date: 20250716
  Serious: Yes (Life-Threatening, Other)
  Sender: NOVARTIS
  Company Number: US-002147023-NVSC2025US090913

PATIENT
  Sex: Female

DRUGS (1)
  1. COSENTYX [Suspect]
     Active Substance: SECUKINUMAB
     Indication: Product used for unknown indication
     Route: 065

REACTIONS (6)
  - Near death experience [Unknown]
  - Sepsis [Unknown]
  - Wound infection staphylococcal [Unknown]
  - Gait disturbance [Unknown]
  - Hidradenitis [Unknown]
  - Impaired healing [Unknown]
